FAERS Safety Report 5661096-2 (Version None)
Quarter: 2008Q1

REPORT INFORMATION
  Report Type: 
  Country: None (occurrence: None)
  Receive Date: 20080305
  Receipt Date: 20080225
  Transmission Date: 20080703
  Serious: Yes (Other)
  Sender: FDA-Public Use
  Company Number: 2008004772

PATIENT
  Age: 65 Year
  Sex: Female
  Weight: 52.6173 kg

DRUGS (1)
  1. CHILDREN'S BENADRYL-D ALLERGY + SINUS (DIPHENHYDRAMINE HYDROCHLORIDE, [Suspect]
     Indication: URTICARIA
     Dosage: 4 TEASPOONS, EVERY 6 HOURS, ORAL
     Route: 048
     Dates: start: 20080223

REACTIONS (1)
  - APNOEA [None]
